FAERS Safety Report 10681862 (Version 1)
Quarter: 2014Q4

REPORT INFORMATION
  Report Type: Spontaneous
  Country: US (occurrence: None)
  Receive Date: 20141229
  Receipt Date: 20141229
  Transmission Date: 20150529
  Serious: Yes (Other)
  Sender: FDA-Public Use
  Company Number: None

PATIENT
  Age: 57 Year
  Sex: Male

DRUGS (5)
  1. AFINITOR [Suspect]
     Active Substance: EVEROLIMUS
     Indication: BRAIN NEOPLASM
     Route: 048
     Dates: start: 20141209
  2. VALPROIC ACID. [Concomitant]
     Active Substance: VALPROIC ACID
  3. SPRYCEL [Concomitant]
     Active Substance: DASATINIB
  4. KEPPRA [Concomitant]
     Active Substance: LEVETIRACETAM
  5. VOTRIENT [Suspect]
     Active Substance: PAZOPANIB HYDROCHLORIDE
     Indication: BRAIN NEOPLASM
     Route: 048
     Dates: start: 20141203

REACTIONS (1)
  - White blood cell count decreased [None]
